FAERS Safety Report 23270725 (Version 4)
Quarter: 2024Q2

REPORT INFORMATION
  Report Type: Spontaneous
  Country: IT (occurrence: IT)
  Receive Date: 20231207
  Receipt Date: 20240502
  Transmission Date: 20240716
  Serious: Yes (Other)
  Sender: FDA-Public Use
  Company Number: IT-ROCHE-3445506

PATIENT
  Age: 67 Year
  Sex: Female

DRUGS (32)
  1. IMBRUVICA [Suspect]
     Active Substance: IBRUTINIB
     Indication: Richter^s syndrome
     Route: 048
     Dates: start: 20200117, end: 20221030
  2. ALLOPURINOL [Concomitant]
     Active Substance: ALLOPURINOL
     Indication: Product used for unknown indication
  3. VENETOCLAX [Suspect]
     Active Substance: VENETOCLAX
     Indication: Richter^s syndrome
     Route: 048
     Dates: start: 20221111
  4. VENETOCLAX [Suspect]
     Active Substance: VENETOCLAX
     Indication: Richter^s syndrome
     Route: 048
     Dates: start: 20230103, end: 20230328
  5. VENETOCLAX [Suspect]
     Active Substance: VENETOCLAX
     Indication: Richter^s syndrome
     Route: 048
     Dates: start: 20230620, end: 20231012
  6. VINCRISTINE [Suspect]
     Active Substance: VINCRISTINE
     Indication: Richter^s syndrome
     Route: 065
     Dates: start: 20221219
  7. VINCRISTINE [Suspect]
     Active Substance: VINCRISTINE
     Indication: Richter^s syndrome
     Route: 065
     Dates: start: 20221111
  8. VINCRISTINE [Suspect]
     Active Substance: VINCRISTINE
     Indication: Richter^s syndrome
     Route: 065
     Dates: start: 20230202, end: 20230207
  9. VINCRISTINE [Suspect]
     Active Substance: VINCRISTINE
     Indication: Richter^s syndrome
     Route: 065
     Dates: end: 20230328
  10. CYCLOPHOSPHAMIDE [Suspect]
     Active Substance: CYCLOPHOSPHAMIDE
     Indication: Richter^s syndrome
     Route: 065
     Dates: start: 20230202, end: 20230207
  11. CYCLOPHOSPHAMIDE [Suspect]
     Active Substance: CYCLOPHOSPHAMIDE
     Indication: Richter^s syndrome
     Route: 065
     Dates: start: 20221219
  12. CYCLOPHOSPHAMIDE [Suspect]
     Active Substance: CYCLOPHOSPHAMIDE
     Indication: Richter^s syndrome
     Dosage: LAST ADMINISTRATION DOSE DATE: 2022
     Route: 065
     Dates: start: 20221111
  13. CYCLOPHOSPHAMIDE [Suspect]
     Active Substance: CYCLOPHOSPHAMIDE
     Indication: Richter^s syndrome
     Dosage: MOST RECENT DOSE RECEIVED ON 28/MAR/2023
     Route: 065
     Dates: end: 20230328
  14. DOXORUBICIN HYDROCHLORIDE [Suspect]
     Active Substance: DOXORUBICIN HYDROCHLORIDE
     Indication: Richter^s syndrome
     Dosage: LAST DOSE ADMINISTRATION DATE:2022
     Route: 065
     Dates: start: 20221111
  15. DOXORUBICIN HYDROCHLORIDE [Suspect]
     Active Substance: DOXORUBICIN HYDROCHLORIDE
     Indication: Richter^s syndrome
     Route: 065
     Dates: start: 20221219
  16. DOXORUBICIN HYDROCHLORIDE [Suspect]
     Active Substance: DOXORUBICIN HYDROCHLORIDE
     Indication: Richter^s syndrome
     Route: 065
     Dates: start: 20230202, end: 20230207
  17. DOXORUBICIN HYDROCHLORIDE [Suspect]
     Active Substance: DOXORUBICIN HYDROCHLORIDE
     Indication: Richter^s syndrome
     Route: 065
     Dates: end: 20230328
  18. ETOPOSIDE [Suspect]
     Active Substance: ETOPOSIDE
     Indication: Richter^s syndrome
     Route: 065
     Dates: start: 20221111
  19. ETOPOSIDE [Suspect]
     Active Substance: ETOPOSIDE
     Indication: Richter^s syndrome
     Route: 065
     Dates: start: 20230202, end: 20230207
  20. RITUXIMAB [Suspect]
     Active Substance: RITUXIMAB
     Indication: Richter^s syndrome
     Dosage: LAST DOSE ADMINISTRATION DOSE DATE: 2022
     Route: 065
     Dates: start: 20221111
  21. RITUXIMAB [Suspect]
     Active Substance: RITUXIMAB
     Indication: Richter^s syndrome
     Route: 065
     Dates: start: 20221219
  22. RITUXIMAB [Suspect]
     Active Substance: RITUXIMAB
     Indication: Richter^s syndrome
     Route: 065
     Dates: start: 20230202, end: 20230207
  23. RITUXIMAB [Suspect]
     Active Substance: RITUXIMAB
     Indication: Richter^s syndrome
     Route: 065
     Dates: end: 20230328
  24. PREGABALIN [Concomitant]
     Active Substance: PREGABALIN
     Indication: Product used for unknown indication
  25. Ursodeoxychol acid [Concomitant]
     Indication: Product used for unknown indication
     Dosage: FREQUENCY: 6 DAYS
     Route: 065
     Dates: start: 20230202, end: 20230207
  26. Ursodeoxychol acid [Concomitant]
     Indication: Product used for unknown indication
     Dosage: MOST RECENT DOSE RECEIVED ON 28/MAR/2023
     Route: 065
     Dates: start: 20221111, end: 20230328
  27. PANTOPRAZOLE [Concomitant]
     Active Substance: PANTOPRAZOLE
     Indication: Product used for unknown indication
     Route: 048
  28. VALACYCLOVIR HYDROCHLORIDE [Concomitant]
     Active Substance: VALACYCLOVIR HYDROCHLORIDE
     Indication: Product used for unknown indication
  29. PREDNISONE [Suspect]
     Active Substance: PREDNISONE
     Indication: Richter^s syndrome
     Route: 065
     Dates: start: 20221111
  30. PREDNISONE [Suspect]
     Active Substance: PREDNISONE
     Indication: Richter^s syndrome
     Route: 065
     Dates: start: 20221219
  31. PREDNISONE [Suspect]
     Active Substance: PREDNISONE
     Indication: Richter^s syndrome
     Route: 065
     Dates: start: 20230202, end: 20230207
  32. PREDNISONE [Suspect]
     Active Substance: PREDNISONE
     Indication: Richter^s syndrome
     Route: 065
     Dates: end: 20230328

REACTIONS (2)
  - Disease progression [Unknown]
  - Off label use [Unknown]
